FAERS Safety Report 10661783 (Version 2)
Quarter: 2015Q3

REPORT INFORMATION
  Report Type: Spontaneous
  Country: US (occurrence: US)
  Receive Date: 20141218
  Receipt Date: 20150721
  Transmission Date: 20151125
  Serious: Yes (Death)
  Sender: FDA-Public Use
  Company Number: US-NOVOPROD-432348

PATIENT
  Sex: Male

DRUGS (1)
  1. VICTOZA [Suspect]
     Active Substance: LIRAGLUTIDE
     Indication: PRODUCT USED FOR UNKNOWN INDICATION
     Dosage: UNK
     Route: 058
     Dates: start: 2012, end: 201307

REACTIONS (1)
  - Pancreatic carcinoma [Fatal]

NARRATIVE: CASE EVENT DATE: 201307
